FAERS Safety Report 18570491 (Version 5)
Quarter: 2021Q1

REPORT INFORMATION
  Report Type: Report from Study
  Country: None (occurrence: BE)
  Receive Date: 20201202
  Receipt Date: 20210105
  Transmission Date: 20210419
  Serious: Yes (Death, Hospitalization)
  Sender: FDA-Public Use
  Company Number: BE-ABBVIE-20K-013-3674685-00

PATIENT
  Age: 93 Year
  Sex: Female
  Weight: 51.2 kg

DRUGS (1)
  1. IMBRUVICA [Suspect]
     Active Substance: IBRUTINIB
     Indication: CHRONIC LYMPHOCYTIC LEUKAEMIA
     Route: 048
     Dates: start: 20150604

REACTIONS (2)
  - Multiple organ dysfunction syndrome [Fatal]
  - Dysphagia [Fatal]

NARRATIVE: CASE EVENT DATE: 20200805
